FAERS Safety Report 9985904 (Version 1)
Quarter: 2014Q1

REPORT INFORMATION
  Report Type: Report from Study
  Country: US (occurrence: US)
  Receive Date: 20140307
  Receipt Date: 20140307
  Transmission Date: 20141002
  Serious: No
  Sender: FDA-Public Use
  Company Number: US-ABBVIE-13P-163-1086122-00

PATIENT
  Sex: Male
  Weight: 65.83 kg

DRUGS (5)
  1. HUMIRA [Suspect]
     Indication: COLITIS ULCERATIVE
     Dosage: STARTED WITH STARTER KIT
     Route: 058
     Dates: start: 20130403
  2. TRAMADOL [Suspect]
     Indication: PAIN
  3. PREDNISONE [Concomitant]
     Indication: PRODUCT USED FOR UNKNOWN INDICATION
  4. 6MP [Concomitant]
     Indication: PRODUCT USED FOR UNKNOWN INDICATION
  5. MVI [Concomitant]
     Indication: PRODUCT USED FOR UNKNOWN INDICATION

REACTIONS (4)
  - Injection site pain [Unknown]
  - Injection site pain [Unknown]
  - Nausea [Unknown]
  - Vomiting [Unknown]
